FAERS Safety Report 23596458 (Version 1)
Quarter: 2024Q1

REPORT INFORMATION
  Report Type: Spontaneous
  Country: US (occurrence: US)
  Receive Date: 20240305
  Receipt Date: 20240305
  Transmission Date: 20240409
  Serious: No
  Sender: FDA-Public Use
  Company Number: US-SA-SAC20240301000138

PATIENT
  Age: 35 Year
  Sex: Female
  Weight: 81.64 kg

DRUGS (26)
  1. DUPIXENT [Suspect]
     Active Substance: DUPILUMAB
     Indication: Asthma
     Dosage: 300 MG, QOW
     Route: 058
     Dates: start: 20220309
  2. RESTASIS [Concomitant]
     Active Substance: CYCLOSPORINE
  3. LORATADINE [Concomitant]
     Active Substance: LORATADINE
  4. ACYCLOVIR [Concomitant]
     Active Substance: ACYCLOVIR
  5. GLYDO [Concomitant]
     Active Substance: LIDOCAINE HYDROCHLORIDE ANHYDROUS
  6. RHINOCORT ALLERGY [Concomitant]
     Active Substance: BUDESONIDE
  7. PULMICORT TURBUHALER [Concomitant]
     Active Substance: BUDESONIDE
  8. XOLAIR [Concomitant]
     Active Substance: OMALIZUMAB
  9. EPINEPHRINE [Concomitant]
     Active Substance: EPINEPHRINE
  10. VITAMIN D3 [Concomitant]
     Active Substance: CHOLECALCIFEROL
  11. FISH OIL [Concomitant]
     Active Substance: FISH OIL
  12. AMITRIPTYLINE HYDROCHLORIDE [Concomitant]
     Active Substance: AMITRIPTYLINE HYDROCHLORIDE
  13. MAGNESIUM [Concomitant]
     Active Substance: MAGNESIUM
  14. TRUVADA [Concomitant]
     Active Substance: EMTRICITABINE\TENOFOVIR DISOPROXIL FUMARATE
  15. CYCLOBENZAPRINE HYDROCHLORIDE [Concomitant]
     Active Substance: CYCLOBENZAPRINE HYDROCHLORIDE
  16. KETOCONAZOLE [Concomitant]
     Active Substance: KETOCONAZOLE
  17. LEVOTHYROXINE [Concomitant]
     Active Substance: LEVOTHYROXINE\LEVOTHYROXINE SODIUM
  18. MELATONIN [Concomitant]
     Active Substance: MELATONIN
  19. NEXPLANON [Concomitant]
     Active Substance: ETONOGESTREL
  20. GABAPENTIN [Concomitant]
     Active Substance: GABAPENTIN
  21. ELMIRON [Concomitant]
     Active Substance: PENTOSAN POLYSULFATE SODIUM
  22. AZELASTINE HYDROCHLORIDE [Concomitant]
     Active Substance: AZELASTINE HYDROCHLORIDE
  23. YUPELRI [Concomitant]
     Active Substance: REVEFENACIN
  24. ADVAIR HFA [Concomitant]
     Active Substance: FLUTICASONE PROPIONATE\SALMETEROL XINAFOATE
  25. FERROUS SULFATE [Concomitant]
     Active Substance: FERROUS SULFATE
  26. VITAMIN B COMPLEX [Concomitant]
     Active Substance: CYANOCOBALAMIN\DEXPANTHENOL\NIACINAMIDE\PYRIDOXINE HYDROCHLORIDE\RIBOFLAVIN 5^-PHOSPHATE SODIUM\THIA

REACTIONS (1)
  - COVID-19 [Not Recovered/Not Resolved]
